FAERS Safety Report 8875658 (Version 1)
Quarter: 2012Q4

REPORT INFORMATION
  Report Type: 
  Country: VE (occurrence: VE)
  Receive Date: 20121023
  Receipt Date: 20121023
  Transmission Date: 20130627
  Serious: Yes (Disabling)
  Sender: FDA-Public Use
  Company Number: PHHY2012VE094909

PATIENT
  Sex: Female

DRUGS (8)
  1. ACLASTA [Suspect]
     Indication: OSTEOPOROSIS
     Dosage: 5 mg, once a year
     Route: 042
     Dates: start: 20110427
  2. ACLASTA [Suspect]
     Dosage: 5 mg, once a year
     Route: 042
     Dates: start: 20120407
  3. ATENOLOL [Concomitant]
  4. CALCIUM [Concomitant]
  5. CELEBREX [Concomitant]
  6. CALTEOR [Concomitant]
  7. FESTAL [Concomitant]
  8. OXINOL [Concomitant]

REACTIONS (3)
  - Fall [Recovering/Resolving]
  - Pain in extremity [Recovering/Resolving]
  - Arthralgia [Recovering/Resolving]
